FAERS Safety Report 7931249-9 (Version None)
Quarter: 2011Q4

REPORT INFORMATION
  Report Type: 
  Country: None (occurrence: None)
  Receive Date: 20111121
  Receipt Date: 20111108
  Transmission Date: 20120403
  Serious: Yes (Hospitalization)
  Sender: FDA-Public Use
  Company Number: US-BAYER-2011-055426

PATIENT
  Age: 48 Year
  Sex: Female
  Weight: 81.179 kg

DRUGS (3)
  1. PANTOPRAZOLE [Concomitant]
     Dosage: 40 MG, QD
     Dates: start: 20020801, end: 20100125
  2. TRIAMTERENE AND HYDROCHLOROTHIAZIDE [Concomitant]
     Dosage: 37.5 UNK, UNK
     Route: 048
     Dates: start: 20020422, end: 20080304
  3. YASMIN [Suspect]
     Indication: PRODUCT USED FOR UNKNOWN INDICATION
     Dosage: UNK
     Route: 048
     Dates: start: 20000101, end: 20090101

REACTIONS (3)
  - PAIN [None]
  - CHOLECYSTITIS CHRONIC [None]
  - CHOLECYSTECTOMY [None]
